FAERS Safety Report 7708216-3 (Version None)
Quarter: 2011Q3

REPORT INFORMATION
  Report Type: 
  Country: None (occurrence: None)
  Receive Date: 20110825
  Receipt Date: 20110816
  Transmission Date: 20111222
  Serious: No
  Sender: FDA-Public Use
  Company Number: US-BIOGENIDEC-2011BI031410

PATIENT
  Age: 43 Year
  Sex: Female

DRUGS (2)
  1. AVONEX [Concomitant]
     Indication: MULTIPLE SCLEROSIS
     Route: 030
     Dates: start: 20020101
  2. TYSABRI [Suspect]
     Indication: MULTIPLE SCLEROSIS
     Route: 042
     Dates: start: 20100803

REACTIONS (2)
  - ABDOMINAL PAIN UPPER [None]
  - DIARRHOEA [None]
